FAERS Safety Report 6262037-X (Version None)
Quarter: 2009Q3

REPORT INFORMATION
  Report Type: 
  Country: None (occurrence: None)
  Receive Date: 20090707
  Receipt Date: 20090707
  Transmission Date: 20100115
  Serious: No
  Sender: FDA-Public Use
  Company Number: None

PATIENT
  Sex: Female
  Weight: 55.3388 kg

DRUGS (2)
  1. ORACEA [Suspect]
     Indication: ROSACEA
     Dates: start: 20090629, end: 20090703
  2. CLOBETASOL PROPIONATE [Concomitant]

REACTIONS (3)
  - ANXIETY [None]
  - FEELING JITTERY [None]
  - PANIC ATTACK [None]
